FAERS Safety Report 6861329-0 (Version None)
Quarter: 2010Q3

REPORT INFORMATION
  Report Type: 
  Country: None (occurrence: None)
  Receive Date: 20100720
  Receipt Date: 20100705
  Transmission Date: 20110219
  Serious: Yes (Other)
  Sender: FDA-Public Use
  Company Number: BR-GENENTECH-292643

PATIENT
  Sex: Male
  Weight: 70 kg

DRUGS (3)
  1. XOLAIR [Suspect]
     Indication: ASTHMA
     Dosage: 300 MG, Q2W
     Route: 058
  2. FORASEQ (BRAZIL) [Suspect]
     Indication: ASTHMA
     Dosage: 1 DF, BID
     Route: 055
  3. FORASEQ (BRAZIL) [Suspect]
     Dosage: 12/400 MCG, 1 INHALATION WITH EACH ACTIVE BID, INHALATION
     Route: 055

REACTIONS (3)
  - DRUG DOSE OMISSION [None]
  - DRUG INEFFECTIVE [None]
  - DYSPNOEA [None]
